FAERS Safety Report 6720341-2 (Version None)
Quarter: 2010Q2

REPORT INFORMATION
  Report Type: 
  Country: None (occurrence: None)
  Receive Date: 20100511
  Receipt Date: 20100429
  Transmission Date: 20101027
  Serious: Yes (Other)
  Sender: FDA-Public Use
  Company Number: JP-PFIZER INC-2010054834

PATIENT
  Age: 57 Year
  Sex: Male

DRUGS (1)
  1. SEIBULE [Suspect]
     Dosage: 50 MG, UNK
     Route: 048

REACTIONS (1)
  - HYPOGLYCAEMIA [None]
